FAERS Safety Report 7901749-6 (Version None)
Quarter: 2011Q4

REPORT INFORMATION
  Report Type: 
  Country: None (occurrence: None)
  Receive Date: 20111108
  Receipt Date: 20111104
  Transmission Date: 20120403
  Serious: Yes (Life-Threatening, Hospitalization)
  Sender: FDA-Public Use
  Company Number: FI-ASTRAZENECA-2011SE66665

PATIENT
  Sex: Female

DRUGS (4)
  1. ANGIOTENSIN-CONVERTING ENZYME INHIBITOR [Interacting]
  2. VIMOVO [Suspect]
     Indication: PAIN
     Dosage: 500MG/20MG, ONE TABLET TWICE PER DAY
     Route: 048
     Dates: start: 20110909
  3. SEVERAL OTHER MEDICINES [Concomitant]
  4. METFORMIN HCL [Interacting]

REACTIONS (6)
  - DIAPHRAGMALGIA [None]
  - BLOOD CREATININE INCREASED [None]
  - BLOOD POTASSIUM INCREASED [None]
  - HEART RATE DECREASED [None]
  - ATRIAL FIBRILLATION [None]
  - DRUG INTERACTION [None]
